FAERS Safety Report 6627683-X (Version None)
Quarter: 2010Q1

REPORT INFORMATION
  Report Type: 
  Country: None (occurrence: None)
  Receive Date: 20100311
  Receipt Date: 20100226
  Transmission Date: 20100710
  Serious: Yes (Hospitalization, Other)
  Sender: FDA-Public Use
  Company Number: PHHY2010CA09412

PATIENT
  Sex: Female

DRUGS (6)
  1. CLOZARIL [Suspect]
     Dosage: 400 MG DAILY
     Route: 048
     Dates: start: 20090708, end: 20100121
  2. CLOPIXOL [Concomitant]
     Dosage: 150 MG Q WEEKLY
  3. LOXAPINE [Concomitant]
     Dosage: 100 MG, QHS
  4. COGENTIN [Concomitant]
     Dosage: 2 MG, BID
     Route: 048
  5. HALDOL [Concomitant]
     Dosage: 5 MG, BID
     Route: 048
  6. PREUACID [Concomitant]
     Dosage: 30 MG QAM

REACTIONS (5)
  - BLOOD PRESSURE DECREASED [None]
  - CARDIAC DISORDER [None]
  - DRUG INEFFECTIVE [None]
  - HEPATIC ENZYME INCREASED [None]
  - OVERDOSE [None]
